FAERS Safety Report 13301594 (Version 4)
Quarter: 2017Q2

REPORT INFORMATION
  Report Type: Report from Study
  Country: FR (occurrence: FR)
  Receive Date: 20170307
  Receipt Date: 20170428
  Transmission Date: 20170830
  Serious: Yes (Other)
  Sender: FDA-Public Use
  Company Number: FR-VIIV HEALTHCARE LIMITED-FR2017GSK029807

PATIENT
  Age: 7 Year
  Sex: Male
  Weight: 23 kg

DRUGS (11)
  1. ZIDOVUDINE. [Suspect]
     Active Substance: ZIDOVUDINE
     Indication: AICARDI^S SYNDROME
     Dosage: 421.0 MG, QD
     Route: 050
     Dates: start: 20160526
  2. SABRIL [Concomitant]
     Active Substance: VIGABATRIN
     Indication: EPILEPSY
     Dosage: 750 MG, QD
     Route: 050
     Dates: start: 200912
  3. LIORESAL [Concomitant]
     Active Substance: BACLOFEN
     Indication: MUSCLE SPASTICITY
     Dosage: 15.0 MG, QD
     Route: 050
     Dates: start: 2012
  4. ESOMEPRAZOLE [Concomitant]
     Active Substance: ESOMEPRAZOLE
     Indication: GASTROOESOPHAGEAL REFLUX DISEASE
     Dosage: 30 MG, QD
     Route: 050
     Dates: start: 2015
  5. NUTRINI ENERGY MULTI FIBRE [Concomitant]
     Indication: NUTRITIONAL SUPPLEMENTATION
     Dosage: 700 ML, QD
     Route: 050
     Dates: start: 201001
  6. LAMIVUDINE. [Suspect]
     Active Substance: LAMIVUDINE
     Indication: AICARDI^S SYNDROME
     Dosage: 187.2 MG, QD
     Route: 050
     Dates: start: 20160526
  7. URBANYL [Concomitant]
     Active Substance: CLOBAZAM
     Indication: EPILEPSY
     Dosage: 4.0 MG, QD
     Route: 050
     Dates: start: 201603, end: 20161101
  8. FORLAX [Concomitant]
     Active Substance: POLYETHYLENE GLYCOL 4000
     Indication: CONSTIPATION
     Dosage: 4.0 G, QD
     Route: 050
     Dates: start: 200908
  9. ABACAVIR SULPHATE [Suspect]
     Active Substance: ABACAVIR
     Indication: AICARDI^S SYNDROME
     Dosage: 374.0 MG, QD
     Route: 050
     Dates: start: 20160526
  10. ECONAZOLE CREAM [Concomitant]
     Indication: INFECTION
     Dosage: 1.0 UNK, UNK
     Route: 061
     Dates: start: 201606, end: 201607
  11. ARTANE [Concomitant]
     Active Substance: TRIHEXYPHENIDYL HYDROCHLORIDE
     Indication: DYSTONIA
     Dosage: 100 GTT, QD
     Route: 050
     Dates: start: 2012

REACTIONS (1)
  - Neutropenia [Recovered/Resolved]

NARRATIVE: CASE EVENT DATE: 20170227
